FAERS Safety Report 21708547 (Version 1)
Quarter: 2022Q4

REPORT INFORMATION
  Report Type: Spontaneous
  Country: US (occurrence: US)
  Receive Date: 20221210
  Receipt Date: 20221210
  Transmission Date: 20230112
  Serious: No
  Sender: FDA-Public Use
  Company Number: US-002147023-NVSC2022US284185

PATIENT
  Sex: Female
  Weight: 86.64 kg

DRUGS (1)
  1. ENTRESTO [Suspect]
     Active Substance: SACUBITRIL\VALSARTAN
     Indication: Product used for unknown indication
     Dosage: UNK UNK, BID, (24/26MG)
     Route: 048
     Dates: start: 20221201, end: 20221205

REACTIONS (2)
  - Hyperhidrosis [Unknown]
  - Pruritus [Unknown]
